FAERS Safety Report 9272504 (Version 4)
Quarter: 2013Q4

REPORT INFORMATION
  Report Type: Spontaneous
  Country: US (occurrence: US)
  Receive Date: 20130506
  Receipt Date: 20131023
  Transmission Date: 20140711
  Serious: Yes (Hospitalization)
  Sender: FDA-Public Use
  Company Number: US-GLAXOSMITHKLINE-A1022410A

PATIENT
  Age: 71 Year
  Sex: Female

DRUGS (1)
  1. PROMACTA [Suspect]
     Indication: LYMPHOMA
     Dosage: 50MG PER DAY
     Route: 065

REACTIONS (3)
  - Pneumonia [Unknown]
  - Local swelling [Recovering/Resolving]
  - Rash [Recovered/Resolved]
